FAERS Safety Report 23191726 (Version 4)
Quarter: 2025Q2

REPORT INFORMATION
  Report Type: Report from Study
  Country: US (occurrence: US)
  Receive Date: 20231116
  Receipt Date: 20250410
  Transmission Date: 20250716
  Serious: No
  Sender: NOVARTIS
  Company Number: US-002147023-NVSC2023US244205

PATIENT
  Sex: Male

DRUGS (1)
  1. KESIMPTA [Suspect]
     Active Substance: OFATUMUMAB
     Indication: Multiple sclerosis
     Dosage: 20 MG, QW
     Route: 058
     Dates: start: 20231109

REACTIONS (5)
  - Pyrexia [Recovering/Resolving]
  - Somnolence [Recovering/Resolving]
  - Hypervigilance [Unknown]
  - Gait disturbance [Unknown]
  - Drug ineffective [Unknown]
